FAERS Safety Report 11538501 (Version 2)
Quarter: 2015Q4

REPORT INFORMATION
  Report Type: Spontaneous
  Country: DZ (occurrence: None)
  Receive Date: 20150921
  Receipt Date: 20151102
  Transmission Date: 20160304
  Serious: Yes (Death, Other)
  Sender: FDA-Public Use
  Company Number: 2015DZ0506

PATIENT
  Age: 8 Month
  Sex: Female

DRUGS (1)
  1. ORFADIN [Suspect]
     Active Substance: NITISINONE
     Indication: TYROSINAEMIA

REACTIONS (5)
  - Haemangioma [None]
  - Hepatic cirrhosis [None]
  - Hepatic failure [None]
  - Drug dose omission [None]
  - Hepatocellular carcinoma [None]
